FAERS Safety Report 13182619 (Version 1)
Quarter: 2017Q1

REPORT INFORMATION
  Report Type: Spontaneous
  Country: US (occurrence: US)
  Receive Date: 20170203
  Receipt Date: 20170203
  Transmission Date: 20170428
  Serious: Yes (Hospitalization, Other)
  Sender: FDA-Public Use
  Company Number: US-PFIZER INC-2017043290

PATIENT
  Sex: Female

DRUGS (1)
  1. XELJANZ [Suspect]
     Active Substance: TOFACITINIB CITRATE
     Dosage: UNK

REACTIONS (22)
  - Dyspnoea [Unknown]
  - Depression [Unknown]
  - Musculoskeletal stiffness [Unknown]
  - Sleep disorder [Unknown]
  - Constipation [Unknown]
  - Back pain [Unknown]
  - Inflammation [Unknown]
  - Joint swelling [Unknown]
  - Wheezing [Unknown]
  - Pruritus [Unknown]
  - Neck pain [Unknown]
  - Abdominal pain [Unknown]
  - Diarrhoea [Unknown]
  - Dry mouth [Unknown]
  - Headache [Unknown]
  - Dry skin [Unknown]
  - Anxiety [Unknown]
  - Arthralgia [Unknown]
  - Tenderness [Unknown]
  - Cough [Unknown]
  - Skin exfoliation [Unknown]
  - Pneumonia [Unknown]
